FAERS Safety Report 11386191 (Version 2)
Quarter: 2015Q3

REPORT INFORMATION
  Report Type: Spontaneous
  Country: CN (occurrence: CN)
  Receive Date: 20150817
  Receipt Date: 20150831
  Transmission Date: 20151125
  Serious: Yes (Death, Other)
  Sender: FDA-Public Use
  Company Number: CN-ROCHE-1621441

PATIENT
  Age: 63 Year
  Sex: Male
  Weight: 74 kg

DRUGS (3)
  1. ZOLEDRONIC ACID [Suspect]
     Active Substance: ZOLEDRONIC ACID
     Indication: METASTATIC GASTRIC CANCER
     Route: 041
     Dates: start: 20150709, end: 20150719
  2. XELODA [Suspect]
     Active Substance: CAPECITABINE
     Indication: METASTATIC GASTRIC CANCER
     Dosage: FORM: 0.5 G
     Route: 048
     Dates: start: 20150709, end: 20150719
  3. NIFEDIPINE. [Concomitant]
     Active Substance: NIFEDIPINE
     Indication: HYPERTENSION

REACTIONS (5)
  - Erythema [Recovering/Resolving]
  - Death [Fatal]
  - Vomiting [Unknown]
  - Dizziness [Not Recovered/Not Resolved]
  - Nausea [Unknown]

NARRATIVE: CASE EVENT DATE: 20150710
